FAERS Safety Report 12732619 (Version 2)
Quarter: 2016Q4

REPORT INFORMATION
  Report Type: Report from Study
  Country: US (occurrence: US)
  Receive Date: 20160912
  Receipt Date: 20161122
  Transmission Date: 20170207
  Serious: No
  Sender: FDA-Public Use
  Company Number: US-UCBSA-2016034512

PATIENT
  Sex: Female

DRUGS (1)
  1. LEVETIRACETAM. [Suspect]
     Active Substance: LEVETIRACETAM
     Indication: PRODUCT USED FOR UNKNOWN INDICATION
     Dosage: UNK

REACTIONS (12)
  - Hypotonia [Unknown]
  - Ear infection [Unknown]
  - Diarrhoea [Unknown]
  - Dermatitis allergic [Unknown]
  - Pain [Unknown]
  - Dyspnoea [Unknown]
  - Vomiting [Unknown]
  - Regressive behaviour [Unknown]
  - Staring [Unknown]
  - Seizure [Unknown]
  - Malaise [Unknown]
  - Influenza [Unknown]
